FAERS Safety Report 6155366-1 (Version None)
Quarter: 2009Q2

REPORT INFORMATION
  Report Type: 
  Country: None (occurrence: None)
  Receive Date: 20090415
  Receipt Date: 20090410
  Transmission Date: 20091009
  Serious: Yes (Other)
  Sender: FDA-Public Use
  Company Number: JP-AVENTIS-200911050JP

PATIENT
  Age: 62 Year
  Sex: Female

DRUGS (3)
  1. LANTUS [Suspect]
     Dosage: DOSE: 8 UNITS
     Route: 058
  2. LANTUS [Suspect]
     Dosage: DOSE: 13 UNITS
     Route: 058
  3. LEVEMIR [Concomitant]
     Dosage: DOSE: 7UNITS + 8 UNITS

REACTIONS (1)
  - HALLUCINATION [None]
